FAERS Safety Report 21195680 (Version 2)
Quarter: 2022Q4

REPORT INFORMATION
  Report Type: Spontaneous
  Country: US (occurrence: US)
  Receive Date: 20220810
  Receipt Date: 20221010
  Transmission Date: 20230113
  Serious: No
  Sender: FDA-Public Use
  Company Number: US-ELI_LILLY_AND_COMPANY-US202207006521

PATIENT
  Age: 62 Year
  Sex: Female

DRUGS (2)
  1. HUMULIN N [Suspect]
     Active Substance: INSULIN HUMAN
     Indication: Product used for unknown indication
     Dosage: 10 U, EACH EVENING (EACH NIGHT)
     Route: 058
     Dates: start: 2019
  2. OZEMPIC [Concomitant]
     Active Substance: SEMAGLUTIDE
     Indication: Product used for unknown indication

REACTIONS (3)
  - Accident [Unknown]
  - Upper limb fracture [Unknown]
  - Diabetic eye disease [Unknown]

NARRATIVE: CASE EVENT DATE: 20220707
